FAERS Safety Report 21610538 (Version 1)
Quarter: 2022Q4

REPORT INFORMATION
  Report Type: Spontaneous
  Country: US (occurrence: None)
  Receive Date: 20221117
  Receipt Date: 20221117
  Transmission Date: 20230113
  Serious: No
  Sender: FDA-Public Use
  Company Number: 2022A352643

PATIENT
  Sex: Male
  Weight: 88.5 kg

DRUGS (1)
  1. FARXIGA [Suspect]
     Active Substance: DAPAGLIFLOZIN PROPANEDIOL
     Indication: Chronic kidney disease
     Route: 048
     Dates: start: 202201

REACTIONS (4)
  - Blood creatinine increased [Unknown]
  - Nephrolithiasis [Unknown]
  - Overweight [Unknown]
  - Exercise lack of [Unknown]
